FAERS Safety Report 5532234-7 (Version None)
Quarter: 2007Q4

REPORT INFORMATION
  Report Type: 
  Country: None (occurrence: None)
  Receive Date: 20071203
  Receipt Date: 20071119
  Transmission Date: 20080405
  Serious: Yes (Hospitalization)
  Sender: FDA-Public Use
  Company Number: JP-GENENTECH-251299

PATIENT
  Sex: Female

DRUGS (4)
  1. HERCEPTIN [Suspect]
     Indication: BREAST CANCER
     Dosage: 105 MG, 1/WEEK
     Route: 041
     Dates: start: 20070822, end: 20071015
  2. KYTRIL [Suspect]
     Indication: PROPHYLAXIS
     Dosage: 3 MG, QD
     Dates: start: 20070530
  3. FARMORUBICIN [Concomitant]
     Indication: DRUG USE FOR UNKNOWN INDICATION
     Dates: start: 20070530
  4. CYCLOPHOSPHAMIDE [Concomitant]
     Indication: DRUG USE FOR UNKNOWN INDICATION
     Dates: start: 20070530

REACTIONS (1)
  - POLYMYOSITIS [None]
